FAERS Safety Report 9222808 (Version 2)
Quarter: 2013Q3

REPORT INFORMATION
  Report Type: Report from Study
  Country: JP (occurrence: JP)
  Receive Date: 20130410
  Receipt Date: 20130710
  Transmission Date: 20140515
  Serious: Yes (Death, Other)
  Sender: FDA-Public Use
  Company Number: JP-PFIZER INC-2012227399

PATIENT
  Age: 68 Year
  Sex: Male
  Weight: 52.9 kg

DRUGS (5)
  1. TEMSIROLIMUS [Suspect]
     Indication: RENAL CELL CARCINOMA
     Dosage: 25 MG, WEEKLY
     Route: 042
     Dates: start: 20111222, end: 20111222
  2. TEMSIROLIMUS [Suspect]
     Dosage: 20 MG, WEEKLY
     Route: 042
     Dates: start: 20120105, end: 20120112
  3. SUTENT [Suspect]
     Indication: METASTATIC RENAL CELL CARCINOMA
     Dosage: UNK
     Route: 048
     Dates: start: 20120121
  4. RESTAMIN [Concomitant]
     Dosage: 30 MG, UNK
     Route: 048
     Dates: start: 20111222
  5. DECADRON [Concomitant]
     Dosage: 0.3 MG, UNK
     Route: 042
     Dates: start: 20111222

REACTIONS (3)
  - Disease progression [Fatal]
  - Renal cell carcinoma [Fatal]
  - Interstitial lung disease [Recovering/Resolving]
